FAERS Safety Report 10286724 (Version 1)
Quarter: 2014Q3

REPORT INFORMATION
  Report Type: Spontaneous
  Country: US (occurrence: None)
  Receive Date: 20140707
  Receipt Date: 20140707
  Transmission Date: 20150326
  Serious: No
  Sender: FDA-Public Use
  Company Number: None

PATIENT
  Age: 34 Year
  Sex: Female

DRUGS (1)
  1. TECFIDERA [Suspect]
     Active Substance: DIMETHYL FUMARATE
     Indication: MULTIPLE SCLEROSIS
     Route: 048
     Dates: start: 20140603, end: 20140610

REACTIONS (7)
  - Dizziness [None]
  - Decreased appetite [None]
  - Erythema [None]
  - Dyspnoea [None]
  - Flushing [None]
  - Vaginal haemorrhage [None]
  - Neck pain [None]

NARRATIVE: CASE EVENT DATE: 20140603
